FAERS Safety Report 5251308-1 (Version None)
Quarter: 2007Q1

REPORT INFORMATION
  Report Type: 
  Country: None (occurrence: None)
  Receive Date: 20070228
  Receipt Date: 20060512
  Transmission Date: 20070707
  Serious: No
  Sender: FDA-Public Use
  Company Number: US-GLAXOSMITHKLINE-A0603377A

PATIENT
  Age: 40 Year
  Sex: Female

DRUGS (2)
  1. LAMICTAL [Suspect]
     Route: 048
     Dates: start: 20051116, end: 20051101
  2. FLUOXETINE HCL [Concomitant]
     Indication: ANXIETY
     Route: 048

REACTIONS (11)
  - ERYTHEMA [None]
  - FATIGUE [None]
  - FEELING ABNORMAL [None]
  - HEADACHE [None]
  - INFLUENZA [None]
  - NAUSEA [None]
  - PAIN [None]
  - PERFORMANCE STATUS DECREASED [None]
  - PRURITUS [None]
  - PYREXIA [None]
  - RASH [None]
